FAERS Safety Report 9649524 (Version 1)
Quarter: 2013Q4

REPORT INFORMATION
  Report Type: Spontaneous
  Country: BR (occurrence: BR)
  Receive Date: 20131028
  Receipt Date: 20131028
  Transmission Date: 20140711
  Serious: Yes (Other)
  Sender: FDA-Public Use
  Company Number: BR-BAXTER-2013BAX042589

PATIENT
  Age: 59 Year
  Sex: Female

DRUGS (2)
  1. GENUXAL [Suspect]
     Indication: PEMPHIGUS
     Route: 042
  2. PREDNISONE [Suspect]
     Indication: PEMPHIGUS
     Route: 048

REACTIONS (1)
  - Disease recurrence [Unknown]
